FAERS Safety Report 26053150 (Version 1)
Quarter: 2025Q4

REPORT INFORMATION
  Report Type: Spontaneous
  Country: RU (occurrence: RU)
  Receive Date: 20251117
  Receipt Date: 20251117
  Transmission Date: 20260119
  Serious: Yes (Other)
  Sender: ROCHE
  Company Number: RU-ROCHE-10000433987

PATIENT
  Sex: Female

DRUGS (6)
  1. BEVACIZUMAB [Suspect]
     Active Substance: BEVACIZUMAB
     Indication: Adenocarcinoma
     Route: 065
     Dates: start: 202404, end: 202406
  2. ATEZOLIZUMAB [Suspect]
     Active Substance: ATEZOLIZUMAB
     Indication: Adenocarcinoma
     Dosage: 1ST DAY/WEEK
     Route: 042
     Dates: start: 202404, end: 202406
  3. PACLITAXEL [Concomitant]
     Active Substance: PACLITAXEL
  4. CARBOPLATIN [Concomitant]
     Active Substance: CARBOPLATIN
  5. GEFITINIB [Concomitant]
     Active Substance: GEFITINIB
  6. OSIMERTINIB [Concomitant]
     Active Substance: OSIMERTINIB

REACTIONS (3)
  - Autoimmune thyroiditis [Unknown]
  - Autoimmune colitis [Unknown]
  - Hypertension [Unknown]
